FAERS Safety Report 25200692 (Version 3)
Quarter: 2025Q2

REPORT INFORMATION
  Report Type: Report from Study
  Country: US (occurrence: US)
  Receive Date: 20250415
  Receipt Date: 20250519
  Transmission Date: 20250716
  Serious: Yes (Hospitalization)
  Sender: BAYER HEALTHCARE PHARMACEUTICALS INC.
  Company Number: US-BAYER-2025A046789

PATIENT
  Sex: Male
  Weight: 80.272 kg

DRUGS (13)
  1. ADEMPAS [Suspect]
     Active Substance: RIOCIGUAT
     Indication: Pulmonary arterial hypertension
     Route: 048
     Dates: start: 20241211
  2. ADEMPAS [Suspect]
     Active Substance: RIOCIGUAT
     Indication: Pulmonary arterial hypertension
     Dosage: 2.5 MG, TID
     Route: 048
  3. ADEMPAS [Suspect]
     Active Substance: RIOCIGUAT
     Indication: Pulmonary arterial hypertension
     Dosage: 1.0 MG, TID
     Route: 048
  4. ADEMPAS [Suspect]
     Active Substance: RIOCIGUAT
     Indication: Pulmonary arterial hypertension
     Dosage: 1.0 MG, TID
     Route: 048
  5. XARELTO [Concomitant]
     Active Substance: RIVAROXABAN
  6. ATORVASTATIN CALCIUM [Concomitant]
     Active Substance: ATORVASTATIN CALCIUM
  7. REVLIMID [Concomitant]
     Active Substance: LENALIDOMIDE
  8. MORPHINE SULFATE [Concomitant]
     Active Substance: MORPHINE SULFATE
  9. VITAMINS [Concomitant]
     Active Substance: VITAMINS
  10. MAGNESIUM [Concomitant]
     Active Substance: MAGNESIUM
  11. OXYGEN [Concomitant]
     Active Substance: OXYGEN
  12. BREO ELLIPTA [Concomitant]
     Active Substance: FLUTICASONE FUROATE\VILANTEROL TRIFENATATE
  13. GINKGO [Concomitant]
     Active Substance: GINKGO

REACTIONS (11)
  - Rhinovirus infection [None]
  - Clostridium difficile infection [None]
  - Gastroenteritis [Recovering/Resolving]
  - Haemoptysis [None]
  - Fall [None]
  - Plasma cell myeloma [None]
  - Blood pressure decreased [None]
  - Product availability issue [None]
  - Therapy interrupted [None]
  - Vomiting [None]
  - Cough [None]
